FAERS Safety Report 9808198 (Version 4)
Quarter: 2014Q1

REPORT INFORMATION
  Report Type: Spontaneous
  Country: US (occurrence: US)
  Receive Date: 20140110
  Receipt Date: 20140320
  Transmission Date: 20141002
  Serious: No
  Sender: FDA-Public Use
  Company Number: US-009507513-1202USA00438

PATIENT
  Sex: Male

DRUGS (3)
  1. PROPECIA [Suspect]
     Indication: ANDROGENETIC ALOPECIA
     Dosage: 1 MG, UNK
     Route: 048
     Dates: start: 2000, end: 2010
  2. FINASTERIDE [Suspect]
     Indication: ANDROGENETIC ALOPECIA
     Dosage: 5 MG, UNK
     Dates: start: 2000
  3. FINASTERIDE [Suspect]
     Dosage: UNK
     Route: 048
     Dates: start: 2000, end: 2011

REACTIONS (20)
  - Cognitive disorder [Not Recovered/Not Resolved]
  - Anxiety [Not Recovered/Not Resolved]
  - Alopecia [Unknown]
  - Hair transplant [Unknown]
  - Sleep apnoea syndrome [Recovering/Resolving]
  - Hyperlipidaemia [Unknown]
  - Weight increased [Unknown]
  - Nephrolithiasis [Unknown]
  - Benign prostatic hyperplasia [Unknown]
  - Hypertension [Unknown]
  - Psoriasis [Unknown]
  - Stress [Unknown]
  - Weight increased [Unknown]
  - Dizziness [Unknown]
  - Obesity [Unknown]
  - Sexual dysfunction [Not Recovered/Not Resolved]
  - Libido decreased [Unknown]
  - Erectile dysfunction [Unknown]
  - Hypersensitivity [Unknown]
  - Hypersensitivity [Recovered/Resolved]
